FAERS Safety Report 8991898 (Version 1)
Quarter: 2012Q4

REPORT INFORMATION
  Report Type: Report from Study
  Country: CA (occurrence: CA)
  Receive Date: 20121231
  Receipt Date: 20121231
  Transmission Date: 20130627
  Serious: Yes (Hospitalization, Other)
  Sender: FDA-Public Use
  Company Number: CA-ROCHE-1170166

PATIENT
  Age: 31 Year
  Sex: Male

DRUGS (4)
  1. OMALIZUMAB [Suspect]
     Indication: ASTHMA
     Dosage: form: not reported
     Route: 058
     Dates: start: 20051005
  2. OMALIZUMAB [Suspect]
     Dosage: form: not reported
     Route: 058
     Dates: start: 20060510
  3. ERTAPENEM [Concomitant]
     Indication: PRODUCT USED FOR UNKNOWN INDICATION
  4. VENTOLINE [Concomitant]
     Indication: PRODUCT USED FOR UNKNOWN INDICATION

REACTIONS (19)
  - Polyp [Unknown]
  - Hypersensitivity [Unknown]
  - Pneumonia [Unknown]
  - Bronchitis [Unknown]
  - Nasopharyngitis [Unknown]
  - Sinusitis [Unknown]
  - Muscular weakness [Unknown]
  - Hypoaesthesia [Unknown]
  - Acne [Unknown]
  - Weight decreased [Unknown]
  - Ear pain [Unknown]
  - Balance disorder [Unknown]
  - Impatience [Unknown]
  - Disturbance in attention [Unknown]
  - Insomnia [Unknown]
  - Dyspnoea [Unknown]
  - Fatigue [Unknown]
  - Drug ineffective [Unknown]
  - Lung operation [Unknown]
